FAERS Safety Report 9858655 (Version 2)
Quarter: 2014Q1

REPORT INFORMATION
  Report Type: Spontaneous
  Country: US (occurrence: None)
  Receive Date: 20140129
  Receipt Date: 20140226
  Transmission Date: 20141002
  Serious: Yes (Death)
  Sender: FDA-Public Use
  Company Number: 2014AP000589

PATIENT
  Age: 30 Year
  Sex: Female

DRUGS (2)
  1. ALPRAZOLAM (TABLETS) [Suspect]
     Route: 051
  2. INSULIN [Suspect]
     Route: 051

REACTIONS (2)
  - Completed suicide [None]
  - Poisoning [None]
